FAERS Safety Report 23767477 (Version 2)
Quarter: 2024Q2

REPORT INFORMATION
  Report Type: Spontaneous
  Country: US (occurrence: US)
  Receive Date: 20240422
  Receipt Date: 20240509
  Transmission Date: 20240715
  Serious: No
  Sender: FDA-Public Use
  Company Number: US-ALCON LABORATORIES-ALC2023US004906

PATIENT
  Sex: Male

DRUGS (1)
  1. ROCKLATAN [Suspect]
     Active Substance: LATANOPROST\NETARSUDIL MESYLATE
     Indication: Intraocular pressure increased
     Dosage: ONE DROP IN EACH EYE ONCE A DAY
     Route: 047

REACTIONS (2)
  - Allergic reaction to excipient [Recovering/Resolving]
  - Ocular hyperaemia [Recovering/Resolving]
